FAERS Safety Report 10930412 (Version 1)
Quarter: 2015Q1

REPORT INFORMATION
  Report Type: Spontaneous
  Country: US (occurrence: None)
  Receive Date: 20150318
  Receipt Date: 20150318
  Transmission Date: 20150721
  Serious: Yes (Hospitalization)
  Sender: FDA-Public Use
  Company Number: None

PATIENT
  Age: 69 Year
  Sex: Male
  Weight: 62.86 kg

DRUGS (1)
  1. CISPLATIN. [Suspect]
     Active Substance: CISPLATIN
     Dosage: GIVEN ON 7/28/14  LAST DOSE
     Dates: end: 20140728

REACTIONS (2)
  - Acute kidney injury [None]
  - Metabolic disorder [None]

NARRATIVE: CASE EVENT DATE: 20140807
